FAERS Safety Report 18986249 (Version 1)
Quarter: 2021Q1

REPORT INFORMATION
  Report Type: Report from Study
  Country: US (occurrence: US)
  Receive Date: 20210309
  Receipt Date: 20210309
  Transmission Date: 20210420
  Serious: Yes (Hospitalization, Other)
  Sender: FDA-Public Use
  Company Number: US-PFIZER INC-2021223668

PATIENT

DRUGS (5)
  1. VORINOSTAT [Suspect]
     Active Substance: VORINOSTAT
     Indication: HODGKIN^S DISEASE REFRACTORY
     Dosage: 300 MG, DAILY
     Route: 048
  2. VORINOSTAT [Suspect]
     Active Substance: VORINOSTAT
     Dosage: 200 MG, DAILY
  3. SIROLIMUS. [Suspect]
     Active Substance: SIROLIMUS
     Dosage: 2 MG, DAILY
  4. VORINOSTAT [Suspect]
     Active Substance: VORINOSTAT
     Dosage: 100 MG, DAILY
  5. SIROLIMUS. [Suspect]
     Active Substance: SIROLIMUS
     Indication: HODGKIN^S DISEASE REFRACTORY
     Dosage: 5 MG, DAILY
     Route: 048

REACTIONS (3)
  - Respiratory failure [Unknown]
  - Neutropenia [Unknown]
  - Thrombocytopenia [Unknown]
